FAERS Safety Report 14474233 (Version 1)
Quarter: 2018Q1

REPORT INFORMATION
  Report Type: Spontaneous
  Country: SK (occurrence: SK)
  Receive Date: 20180201
  Receipt Date: 20180201
  Transmission Date: 20180509
  Serious: Yes (Other)
  Sender: FDA-Public Use
  Company Number: SK-JNJFOC-20180137620

PATIENT
  Age: 70 Year
  Sex: Female
  Weight: 79 kg

DRUGS (2)
  1. STELARA [Suspect]
     Active Substance: USTEKINUMAB
     Indication: PSORIASIS
     Route: 058
     Dates: start: 201010, end: 201708
  2. MOLSIDOMINE [Concomitant]
     Active Substance: MOLSIDOMINE
     Indication: MYOCARDIAL ISCHAEMIA
     Route: 065

REACTIONS (2)
  - Thrombophlebitis superficial [Recovering/Resolving]
  - Deep vein thrombosis [Recovered/Resolved]

NARRATIVE: CASE EVENT DATE: 201708
